FAERS Safety Report 13156188 (Version 1)
Quarter: 2017Q1

REPORT INFORMATION
  Report Type: Spontaneous
  Country: JP (occurrence: JP)
  Receive Date: 20170126
  Receipt Date: 20170126
  Transmission Date: 20170428
  Serious: Yes (Hospitalization)
  Sender: FDA-Public Use
  Company Number: JP-DSJP-DSJ-2017-102579

PATIENT

DRUGS (8)
  1. BAKTAR [Concomitant]
     Active Substance: SULFAMETHOXAZOLE\TRIMETHOPRIM
     Indication: AUTOIMMUNE NEPHRITIS
     Dosage: UNK, 3 TIMES (MON. WED. FRI.)/WEEK, QD
     Route: 048
     Dates: start: 201408
  2. FEBURIC [Concomitant]
     Active Substance: FEBUXOSTAT
     Indication: HYPERURICAEMIA
     Dosage: 20 MG, QD
     Route: 048
     Dates: start: 201409
  3. ATORVASTATIN                       /01326102/ [Concomitant]
     Active Substance: ATORVASTATIN
     Indication: DYSLIPIDAEMIA
     Dosage: 10 MG, QD
     Route: 048
     Dates: start: 201410
  4. CILOSTAZOL. [Concomitant]
     Active Substance: CILOSTAZOL
     Indication: CEREBRAL ARTERY STENOSIS
     Dosage: 100 MG, BID
     Route: 048
     Dates: start: 201510
  5. PREDONINE [Concomitant]
     Active Substance: PREDNISOLONE
     Indication: AUTOIMMUNE NEPHRITIS
     Dosage: 10 MG, QD
     Route: 048
     Dates: start: 201408
  6. REBAMIPIDE [Concomitant]
     Active Substance: REBAMIPIDE
     Indication: AUTOIMMUNE NEPHRITIS
     Dosage: 100 MG, BID
     Route: 048
     Dates: start: 201405
  7. OLMETEC TABLETS 10MG [Suspect]
     Active Substance: OLMESARTAN MEDOXOMIL
     Dosage: 10 MG, QD
     Route: 048
     Dates: start: 20151005, end: 20151026
  8. NEXIUM [Concomitant]
     Active Substance: ESOMEPRAZOLE MAGNESIUM
     Indication: AUTOIMMUNE NEPHRITIS
     Dosage: 10 MG, QD
     Route: 048
     Dates: start: 201405

REACTIONS (1)
  - Transient ischaemic attack [Recovered/Resolved]

NARRATIVE: CASE EVENT DATE: 20151026
